FAERS Safety Report 16140527 (Version 1)
Quarter: 2019Q2

REPORT INFORMATION
  Report Type: Spontaneous
  Country: US (occurrence: US)
  Receive Date: 20190401
  Receipt Date: 20190401
  Transmission Date: 20190711
  Serious: No
  Sender: FDA-Public Use
  Company Number: US-SEPTODONT-201804715

PATIENT
  Age: 13 Year
  Sex: Female

DRUGS (1)
  1. LIDOCAINE. [Suspect]
     Active Substance: LIDOCAINE
     Indication: DENTAL LOCAL ANAESTHESIA
     Dosage: SUSPECT DRUG ADMINISTERED WITH POSTERIOR SUPERIOR ALVEOLAR AND INFERIOR ALVEOLAR BLOCK
     Dates: start: 20180501, end: 20180501

REACTIONS (11)
  - Pain in jaw [Unknown]
  - Haematoma [Unknown]
  - Scratch [Recovering/Resolving]
  - Erythema [Recovering/Resolving]
  - Trismus [Unknown]
  - Skin lesion [Recovering/Resolving]
  - Scab [Recovering/Resolving]
  - Pallor [Recovering/Resolving]
  - Swelling face [Recovering/Resolving]
  - Urticaria [Recovering/Resolving]
  - Scar [Recovering/Resolving]

NARRATIVE: CASE EVENT DATE: 20180501
